FAERS Safety Report 11493689 (Version 1)
Quarter: 2015Q3

REPORT INFORMATION
  Report Type: Spontaneous
  Country: US (occurrence: None)
  Receive Date: 20150910
  Receipt Date: 20150910
  Transmission Date: 20151125
  Serious: Yes (Disabling, Other)
  Sender: FDA-Public Use
  Company Number: None

PATIENT
  Age: 38 Year
  Sex: Male
  Weight: 90.72 kg

DRUGS (2)
  1. BACITRACIN. [Suspect]
     Active Substance: BACITRACIN
     Indication: INFECTION
     Route: 031
     Dates: start: 20150820, end: 20150823
  2. BACITRACIN. [Suspect]
     Active Substance: BACITRACIN
     Indication: SEASONAL ALLERGY
     Route: 031
     Dates: start: 20150820, end: 20150823

REACTIONS (4)
  - Impaired work ability [None]
  - Eye swelling [None]
  - Eye inflammation [None]
  - Eye discharge [None]

NARRATIVE: CASE EVENT DATE: 20150820
